FAERS Safety Report 7118383-0 (Version None)
Quarter: 2010Q4

REPORT INFORMATION
  Report Type: 
  Country: None (occurrence: None)
  Receive Date: 20101123
  Receipt Date: 20101116
  Transmission Date: 20110411
  Serious: Yes (Hospitalization)
  Sender: FDA-Public Use
  Company Number: US-US-EMD SERONO, INC.-230534M09USA

PATIENT
  Sex: Female
  Weight: 59 kg

DRUGS (5)
  1. REBIF [Suspect]
     Indication: MULTIPLE SCLEROSIS
     Route: 058
     Dates: start: 20050613, end: 20080414
  2. REBIF [Suspect]
     Route: 058
     Dates: start: 20090211
  3. CALCIUM [Concomitant]
     Indication: OSTEOPOROSIS
  4. POTASSIUM CHLORIDE [Concomitant]
     Indication: BLOOD POTASSIUM DECREASED
  5. IBUPROFEN [Concomitant]
     Indication: PREMEDICATION

REACTIONS (7)
  - ANTIPHOSPHOLIPID SYNDROME [None]
  - BLOOD POTASSIUM DECREASED [None]
  - DEEP VEIN THROMBOSIS [None]
  - GASTROENTERITIS [None]
  - HEADACHE [None]
  - HYPOTHYROIDISM [None]
  - INJECTION SITE INFECTION [None]
